FAERS Safety Report 7995091-5 (Version None)
Quarter: 2011Q4

REPORT INFORMATION
  Report Type: 
  Country: None (occurrence: None)
  Receive Date: 20111220
  Receipt Date: 20110517
  Transmission Date: 20120403
  Serious: Yes (Hospitalization)
  Sender: FDA-Public Use
  Company Number: US-GLAXOSMITHKLINE-A0928702A

PATIENT
  Age: 79 Year
  Sex: Male

DRUGS (1)
  1. AVANDIA [Suspect]
     Indication: DIABETES MELLITUS
     Dosage: 8MG PER DAY
     Route: 048
     Dates: start: 20010301, end: 20051001

REACTIONS (9)
  - MYOCARDIAL INFARCTION [None]
  - VASCULAR GRAFT [None]
  - CORONARY ARTERIAL STENT INSERTION [None]
  - FATIGUE [None]
  - HYPERTENSION [None]
  - MOBILITY DECREASED [None]
  - HEART RATE DECREASED [None]
  - DYSPNOEA [None]
  - IMPLANTABLE DEFIBRILLATOR INSERTION [None]
